FAERS Safety Report 23961810 (Version 1)
Quarter: 2024Q2

REPORT INFORMATION
  Report Type: Spontaneous
  Country: US (occurrence: None)
  Receive Date: 20240610
  Receipt Date: 20240610
  Transmission Date: 20240716
  Serious: No
  Sender: FDA-Public Use
  Company Number: None

PATIENT
  Age: 41 Year
  Sex: Female

DRUGS (1)
  1. TALTZ [Suspect]
     Active Substance: IXEKIZUMAB
     Indication: Psoriatic arthropathy
     Dosage: OTHER QUANTITY : 80MG (1 PEN);?FREQUENCY : MONTHLY;?
     Route: 058
     Dates: start: 202406

REACTIONS (2)
  - Drug hypersensitivity [None]
  - Injection site swelling [None]
